FAERS Safety Report 24097286 (Version 1)
Quarter: 2024Q3

REPORT INFORMATION
  Report Type: Spontaneous
  Country: US (occurrence: US)
  Receive Date: 20240716
  Receipt Date: 20240716
  Transmission Date: 20241017
  Serious: No
  Sender: PFIZER
  Company Number: US-SEATTLE GENETICS-2022SGN08666

PATIENT
  Age: 64 Year
  Sex: Female

DRUGS (3)
  1. TUKYSA [Suspect]
     Active Substance: TUCATINIB
     Indication: Breast cancer
     Dosage: 50 MG, 5 TABLETS (250 MG TOTAL) EVERY 12 HOURS
  2. TUKYSA [Suspect]
     Active Substance: TUCATINIB
     Dosage: 50 MG
  3. TUKYSA [Suspect]
     Active Substance: TUCATINIB
     Dosage: TUKYSA 50MG TAKE 5 TABLETS TWICE A DAY

REACTIONS (2)
  - Ulcer [Unknown]
  - Off label use [Unknown]

NARRATIVE: CASE EVENT DATE: 20210101
